FAERS Safety Report 21988538 (Version 1)
Quarter: 2023Q1

REPORT INFORMATION
  Report Type: Other
  Country: GB (occurrence: GB)
  Receive Date: 20230214
  Receipt Date: 20230214
  Transmission Date: 20230417
  Serious: Yes (Life-Threatening, Hospitalization, Other)
  Sender: FDA-Public Use
  Company Number: None

PATIENT
  Age: 60 Year
  Sex: Male

DRUGS (2)
  1. IBUPROFEN [Suspect]
     Active Substance: IBUPROFEN
     Indication: Pain
     Dosage: UNK, EVERY 4 HRS (CAPSULE)
     Route: 065
     Dates: start: 20230131, end: 20230202
  2. ASPIRIN [Suspect]
     Active Substance: ASPIRIN
     Indication: Pain
     Dosage: 300 MILLIGRAM, EVERY 4 HRS (TABLET)
     Route: 065
     Dates: start: 20230131, end: 20230202

REACTIONS (1)
  - Haemorrhage [Recovered/Resolved]

NARRATIVE: CASE EVENT DATE: 20230202
